FAERS Safety Report 21669986 (Version 3)
Quarter: 2023Q1

REPORT INFORMATION
  Report Type: Spontaneous
  Country: US (occurrence: US)
  Receive Date: 20221201
  Receipt Date: 20230306
  Transmission Date: 20230417
  Serious: Yes (Life-Threatening, Disabling)
  Sender: FDA-Public Use
  Company Number: US-AMERICAN REGENT INC-2022002754

PATIENT
  Age: 44 Year
  Sex: Female
  Weight: 103.76 kg

DRUGS (28)
  1. FERRIC CARBOXYMALTOSE [Suspect]
     Active Substance: FERRIC CARBOXYMALTOSE
     Indication: Iron deficiency anaemia
     Dosage: UNK, SINGLE
     Route: 042
     Dates: start: 201609, end: 201609
  2. FERRIC CARBOXYMALTOSE [Suspect]
     Active Substance: FERRIC CARBOXYMALTOSE
     Indication: Anaemia
     Dosage: 750 MILLIGRAM, SINGLE
     Route: 042
     Dates: start: 201609, end: 201609
  3. FERRIC CARBOXYMALTOSE [Suspect]
     Active Substance: FERRIC CARBOXYMALTOSE
     Dosage: UNK, SINGLE
     Route: 042
     Dates: start: 201704, end: 201704
  4. FERRIC CARBOXYMALTOSE [Suspect]
     Active Substance: FERRIC CARBOXYMALTOSE
     Dosage: UNK, SINGLE
     Route: 042
     Dates: start: 201707, end: 201707
  5. FERRIC CARBOXYMALTOSE [Suspect]
     Active Substance: FERRIC CARBOXYMALTOSE
     Dosage: 750 MILLIGRAM, SINGLE
     Route: 042
     Dates: start: 20180709, end: 20180709
  6. FERRIC CARBOXYMALTOSE [Suspect]
     Active Substance: FERRIC CARBOXYMALTOSE
     Dosage: UNK
     Route: 042
     Dates: start: 202101, end: 202101
  7. FERRIC CARBOXYMALTOSE [Suspect]
     Active Substance: FERRIC CARBOXYMALTOSE
     Dosage: UNK
     Route: 042
     Dates: start: 2021, end: 2021
  8. FERRIC CARBOXYMALTOSE [Suspect]
     Active Substance: FERRIC CARBOXYMALTOSE
     Dosage: UNK
     Route: 042
     Dates: start: 20210607, end: 20210607
  9. ELIQUIS [Concomitant]
     Active Substance: APIXABAN
     Indication: Pulmonary embolism
     Dosage: 5 MILLIGRAM, BID (EVERY 12 HOURS)
     Route: 048
     Dates: start: 20200916, end: 2021
  10. ELIQUIS [Concomitant]
     Active Substance: APIXABAN
     Dosage: 5 MILLIGRAM, BID
     Route: 048
     Dates: start: 202008, end: 2020
  11. IRON 325 (65 Fe) [Concomitant]
     Indication: Iron deficiency anaemia
     Dosage: 1 TABLET, QD WITH FOOD
     Route: 048
     Dates: start: 20200916
  12. IRON 325 (65 Fe) [Concomitant]
     Indication: Anaemia
  13. TORSEMIDE [Concomitant]
     Active Substance: TORSEMIDE
     Indication: Peripheral swelling
     Dosage: 20 MILLIGRAM (TAKE TWO TABLETS), QD
     Route: 048
     Dates: start: 20201016
  14. TORSEMIDE [Concomitant]
     Active Substance: TORSEMIDE
     Dosage: 20 MILLIGRAM, QD
     Route: 048
     Dates: start: 20200916, end: 20201016
  15. POTASSIUM CHLORIDE [Concomitant]
     Active Substance: POTASSIUM CHLORIDE
     Indication: Product used for unknown indication
     Dosage: 20 MILLIEQUIVALENT (TWO TABLETS), QD
     Route: 065
     Dates: start: 20201016
  16. POTASSIUM CHLORIDE [Concomitant]
     Active Substance: POTASSIUM CHLORIDE
     Dosage: 20 MILLIEQUIVALENT, QD WITH FOOD
     Route: 048
     Dates: start: 20200821, end: 20201016
  17. METOLAZONE [Concomitant]
     Active Substance: METOLAZONE
     Indication: Peripheral swelling
     Dosage: 2.5 MILLIGRAM, QD
     Route: 048
     Dates: start: 20210602
  18. METOLAZONE [Concomitant]
     Active Substance: METOLAZONE
     Dosage: 2.5 MILLIGRAM, 30 MINUTES BEFORE TORSEMIDE NO MORE THAN ONCE PER WEEK
     Route: 048
     Dates: start: 20201016
  19. TOPIRAMATE [Concomitant]
     Active Substance: TOPIRAMATE
     Indication: Product used for unknown indication
     Dosage: 100 MILLIGRAM, QD
     Route: 048
     Dates: start: 20210301
  20. TOPIRAMATE [Concomitant]
     Active Substance: TOPIRAMATE
     Dosage: 100 MILLIGRAM, BID
     Route: 048
  21. VICODIN ES [Concomitant]
     Active Substance: ACETAMINOPHEN\HYDROCODONE BITARTRATE
     Indication: Pain
     Dosage: 300 MILLIGRAM - 7.5 MILLIGRAM, 1 TABLET EVERY 6 HOURS, PRN
     Route: 048
  22. HYOSCYAMINE [Concomitant]
     Active Substance: HYOSCYAMINE
     Indication: Product used for unknown indication
     Dosage: 0.125 MILLIGRAM, QID
     Route: 065
  23. NORTRIPTYLINE [Concomitant]
     Active Substance: NORTRIPTYLINE
     Indication: Product used for unknown indication
     Dosage: 25 MILLIGRAM, TID
     Route: 048
  24. BUSPIRONE [Concomitant]
     Active Substance: BUSPIRONE HYDROCHLORIDE
     Indication: Product used for unknown indication
     Dosage: 10 MILLIGRAM, TID
     Route: 048
  25. VITAMIN B12 [Concomitant]
     Active Substance: CYANOCOBALAMIN
     Indication: Product used for unknown indication
     Dosage: 1000 MICROGRAM, QD
     Route: 048
  26. VITAMIN D3 [Concomitant]
     Active Substance: CHOLECALCIFEROL
     Indication: Product used for unknown indication
     Dosage: 1000 INTERNATIONAL UNIT, QD
     Route: 048
  27. FERRALET [ASCORBIC ACID;CYANOCOBALAMIN;DOCUSATE SODIUM;FERROUS GLUCONA [Concomitant]
     Indication: Product used for unknown indication
     Dosage: 1 UNKNOWN, QD
     Route: 048
  28. SPIRONOLACTONE [Concomitant]
     Active Substance: SPIRONOLACTONE
     Indication: Product used for unknown indication
     Dosage: 50 MILLIGRAM, QD
     Route: 048

REACTIONS (10)
  - Pain [Not Recovered/Not Resolved]
  - Asthenia [Not Recovered/Not Resolved]
  - Stress [Not Recovered/Not Resolved]
  - Anxiety [Not Recovered/Not Resolved]
  - Hypophosphataemia [Not Recovered/Not Resolved]
  - Arthralgia [Not Recovered/Not Resolved]
  - Tachycardia [Not Recovered/Not Resolved]
  - Anhedonia [Not Recovered/Not Resolved]
  - Emotional distress [Not Recovered/Not Resolved]
  - Product quality issue [Unknown]

NARRATIVE: CASE EVENT DATE: 20200706
